FAERS Safety Report 14298994 (Version 1)
Quarter: 2017Q4

REPORT INFORMATION
  Report Type: Spontaneous
  Country: US (occurrence: US)
  Receive Date: 20171217
  Receipt Date: 20171217
  Transmission Date: 20180321
  Serious: Yes (Other)
  Sender: FDA-Public Use
  Company Number: None

PATIENT
  Age: 33 Year
  Sex: Female
  Weight: 71.55 kg

DRUGS (6)
  1. AMOX-CLAV [Concomitant]
     Active Substance: AMOXICILLIN\CLAVULANATE POTASSIUM
  2. PREDNISONE. [Suspect]
     Active Substance: PREDNISONE
     Indication: SINUSITIS
     Route: 048
     Dates: start: 20171212, end: 20171214
  3. VITAMIN D3 [Concomitant]
     Active Substance: CHOLECALCIFEROL
  4. XYZAL [Concomitant]
     Active Substance: LEVOCETIRIZINE DIHYDROCHLORIDE
  5. FERROUS SULFATE. [Concomitant]
     Active Substance: FERROUS SULFATE
  6. DIM [Concomitant]

REACTIONS (7)
  - Hypoaesthesia [None]
  - Chest pain [None]
  - Panic attack [None]
  - Dizziness [None]
  - Paraesthesia [None]
  - Dyspepsia [None]
  - Head discomfort [None]

NARRATIVE: CASE EVENT DATE: 20171215
